FAERS Safety Report 9235019 (Version 2)
Quarter: 2013Q2

REPORT INFORMATION
  Report Type: Spontaneous
  Country: DE (occurrence: DE)
  Receive Date: 20130416
  Receipt Date: 20130429
  Transmission Date: 20140414
  Serious: Yes (Other)
  Sender: FDA-Public Use
  Company Number: DE-PFIZER INC-2013117523

PATIENT
  Age: 68 Year
  Sex: Female
  Weight: 75 kg

DRUGS (2)
  1. IBUPROFEN [Suspect]
     Indication: MIGRAINE
     Dosage: 1 DF (SUPPOSITORY)
     Route: 054
     Dates: start: 20130301, end: 20130302
  2. IBUPROFEN [Suspect]
     Dosage: 1 DF (SUPPOSITORY), 1X/DAY IN THE NIGHT
     Route: 054
     Dates: start: 20130320, end: 20130321

REACTIONS (3)
  - Haematochezia [Recovered/Resolved]
  - Diarrhoea [Recovered/Resolved]
  - Abdominal pain upper [Recovered/Resolved]
